FAERS Safety Report 4546148-2 (Version None)
Quarter: 2005Q1

REPORT INFORMATION
  Report Type: 
  Country: None (occurrence: None)
  Receive Date: 20050103
  Receipt Date: 20041221
  Transmission Date: 20050727
  Serious: Yes (Other)
  Sender: FDA-Public Use
  Company Number: 200416176BCC

PATIENT
  Age: 70 Year
  Sex: Female
  Weight: 55.7924 kg

DRUGS (5)
  1. ALEVE (CAPLET) [Suspect]
     Indication: ARTHRITIS
     Dosage: 220 MG, PRN, ORAL
     Route: 048
  2. IMODIUM [Concomitant]
  3. FORTAMET [Concomitant]
  4. ENALAPRIL [Concomitant]
  5. PLETAL [Concomitant]

REACTIONS (3)
  - CARDIAC DISORDER [None]
  - REFUSAL OF TREATMENT BY PATIENT [None]
  - SYNCOPE [None]
